FAERS Safety Report 6329872-0 (Version None)
Quarter: 2009Q3

REPORT INFORMATION
  Report Type: 
  Country: None (occurrence: None)
  Receive Date: 20090825
  Receipt Date: 20090811
  Transmission Date: 20100115
  Serious: Yes (Death, Hospitalization)
  Sender: FDA-Public Use
  Company Number: B0589366A

PATIENT
  Sex: 0
  Weight: 63.8665 kg

DRUGS (1)
  1. DIGOXIN [Suspect]
     Dosage: ORAL
     Route: 048

REACTIONS (5)
  - ARRHYTHMIA [None]
  - BRADYCARDIA [None]
  - HYPERKALAEMIA [None]
  - OVERDOSE [None]
  - THERAPEUTIC AGENT TOXICITY [None]
